FAERS Safety Report 9914852 (Version 1)
Quarter: 2014Q1

REPORT INFORMATION
  Report Type: Spontaneous
  Country: GB (occurrence: GB)
  Receive Date: 20140220
  Receipt Date: 20140220
  Transmission Date: 20141002
  Serious: Yes (Other)
  Sender: FDA-Public Use
  Company Number: GB-PFIZER INC-2014044521

PATIENT
  Sex: Female

DRUGS (1)
  1. VINORELBINE [Suspect]
     Indication: NON-SMALL CELL LUNG CANCER
     Dosage: 2 CYCLES
     Route: 065

REACTIONS (1)
  - Neutropenic sepsis [Recovered/Resolved]
